FAERS Safety Report 6390717-4 (Version None)
Quarter: 2009Q4

REPORT INFORMATION
  Report Type: 
  Country: None (occurrence: None)
  Receive Date: 20091006
  Receipt Date: 20090925
  Transmission Date: 20100525
  Serious: Yes (Hospitalization)
  Sender: FDA-Public Use
  Company Number: DE-ELI_LILLY_AND_COMPANY-DE200909006875

PATIENT
  Sex: Female

DRUGS (9)
  1. FORTEO [Suspect]
     Indication: OSTEOPOROSIS
     Dosage: UNK, DAILY (1/D)
     Route: 058
     Dates: start: 20090701
  2. ANALGESICS [Concomitant]
  3. CORTISON [Concomitant]
     Dosage: 4 MG, UNKNOWN
  4. CORTISON [Concomitant]
     Dosage: 9 MG, UNKNOWN
  5. CALCITRAT [Concomitant]
  6. DEKRISTOL [Concomitant]
     Dosage: 20000 IU, UNKNOWN
  7. METHOTREXATE [Concomitant]
     Dosage: 7.5 MG, UNKNOWN
  8. METHYLPREDNISOLONE [Concomitant]
     Dosage: UNK, UNKNOWN
  9. METHYLPREDNISOLONE [Concomitant]
     Dosage: 9 MG, UNKNOWN

REACTIONS (3)
  - BACK PAIN [None]
  - C-REACTIVE PROTEIN INCREASED [None]
  - RED BLOOD CELL SEDIMENTATION RATE INCREASED [None]
